FAERS Safety Report 21629268 (Version 2)
Quarter: 2022Q4

REPORT INFORMATION
  Report Type: Spontaneous
  Country: ZA (occurrence: ZA)
  Receive Date: 20221122
  Receipt Date: 20221205
  Transmission Date: 20230112
  Serious: Yes (Death, Other)
  Sender: FDA-Public Use
  Company Number: ZA-ALXN-A202214254

PATIENT
  Age: 16 Month
  Sex: Female
  Weight: 10 kg

DRUGS (12)
  1. SOLIRIS [Suspect]
     Active Substance: ECULIZUMAB
     Indication: Atypical haemolytic uraemic syndrome
     Dosage: 600 MG, UNK
     Route: 042
     Dates: start: 20221031
  2. AMLODIPINE [Concomitant]
     Active Substance: AMLODIPINE BESYLATE
     Indication: Hypertension
     Dosage: 2.5 MG, BID
     Route: 048
     Dates: start: 202210
  3. CLONIDINE [Concomitant]
     Active Substance: CLONIDINE
     Indication: Pain
     Dosage: 40 ?G, TID
     Route: 048
     Dates: start: 202210
  4. ENALAPRIL [Concomitant]
     Active Substance: ENALAPRIL
     Indication: Hypertension
     Dosage: 2.5 MG, BID
     Route: 048
     Dates: start: 202210
  5. ERYTHROPOIETIN [Concomitant]
     Active Substance: ERYTHROPOIETIN
     Indication: Anaemia
     Dosage: 4000 IU, 2 TIMES PER WEEK
     Route: 030
     Dates: start: 202210
  6. FOLATE SODIUM [Concomitant]
     Active Substance: FOLATE SODIUM
     Indication: Anaemia
     Dosage: 5 MG, QD
     Route: 048
  7. MULTIVITAMIN                       /00097801/ [Concomitant]
     Indication: Nutritional supplementation
     Dosage: 5 UNK, UNK
     Route: 048
     Dates: start: 202209
  8. NYSTATIN [Concomitant]
     Active Substance: NYSTATIN
     Indication: Oral candidiasis
     Dosage: 1 ML, Q6H
     Route: 048
     Dates: start: 202210
  9. OMEPRAZOLE [Concomitant]
     Active Substance: OMEPRAZOLE
     Indication: Gastritis
     Dosage: 7.5 MG, QD
     Route: 048
  10. PENICILLIN V POTASSIUM [Concomitant]
     Active Substance: PENICILLIN V POTASSIUM
     Indication: Prophylaxis
     Dosage: 250 MG, BID
     Route: 048
     Dates: start: 202210
  11. PHENOBARBITONE                     /00023201/ [Concomitant]
     Indication: Seizure
     Dosage: 60 MG, UNK
     Route: 065
     Dates: start: 202210
  12. ZINC [Concomitant]
     Active Substance: ZINC
     Indication: Nutritional supplementation
     Dosage: 10 MG, QD
     Route: 048
     Dates: start: 202209

REACTIONS (2)
  - Haemorrhage intracranial [Fatal]
  - Seizure [Fatal]

NARRATIVE: CASE EVENT DATE: 20221115
